FAERS Safety Report 13492513 (Version 1)
Quarter: 2017Q2

REPORT INFORMATION
  Report Type: Spontaneous
  Country: US (occurrence: US)
  Receive Date: 20170427
  Receipt Date: 20170427
  Transmission Date: 20170830
  Serious: No
  Sender: FDA-Public Use
  Company Number: US-UPSHER-SMITH LABORATORIES, INC.-16000859

PATIENT
  Age: 48 Year
  Sex: Female

DRUGS (2)
  1. ASACOL [Concomitant]
     Active Substance: MESALAMINE
     Dosage: UNK, UNK
     Route: 048
  2. PREVALITE [Suspect]
     Active Substance: CHOLESTYRAMINE
     Indication: CROHN^S DISEASE
     Dosage: 4 G, ONCE
     Route: 048
     Dates: start: 20160504, end: 20160504

REACTIONS (2)
  - Abdominal pain upper [Recovered/Resolved]
  - Gastrooesophageal reflux disease [Recovered/Resolved]

NARRATIVE: CASE EVENT DATE: 20160504
